FAERS Safety Report 12973913 (Version 1)
Quarter: 2016Q4

REPORT INFORMATION
  Report Type: Spontaneous
  Country: RU (occurrence: RU)
  Receive Date: 20161124
  Receipt Date: 20161124
  Transmission Date: 20170207
  Serious: Yes (Other)
  Sender: FDA-Public Use
  Company Number: RU-009507513-1611RUS012054

PATIENT
  Sex: Female

DRUGS (1)
  1. RIBAVIRIN. [Suspect]
     Active Substance: RIBAVIRIN
     Indication: CHRONIC HEPATITIS C
     Dosage: UNK
     Dates: start: 201303, end: 201310

REACTIONS (3)
  - Leukopenia [Unknown]
  - Anaemia [Unknown]
  - Hepatitis C [Unknown]

NARRATIVE: CASE EVENT DATE: 2013
